FAERS Safety Report 8818405 (Version 2)
Quarter: 2012Q4

REPORT INFORMATION
  Report Type: Report from Study
  Country: JP (occurrence: JP)
  Receive Date: 20121001
  Receipt Date: 20121024
  Transmission Date: 20130627
  Serious: Yes (Hospitalization)
  Sender: FDA-Public Use
  Company Number: JP-ROCHE-1138532

PATIENT
  Age: 55 Year
  Sex: Female
  Weight: 43 kg

DRUGS (6)
  1. TOCILIZUMAB [Suspect]
     Indication: RHEUMATOID ARTHRITIS
     Dosage: 328-352mg
     Route: 041
     Dates: start: 20090304, end: 20110608
  2. TOCILIZUMAB [Suspect]
     Indication: RHEUMATOID ARTHRITIS
     Route: 041
     Dates: start: 20110921
  3. METOLATE [Concomitant]
     Indication: RHEUMATOID ARTHRITIS
     Route: 048
  4. METOLATE [Concomitant]
     Indication: RHEUMATOID ARTHRITIS
     Route: 048
     Dates: start: 20090701
  5. EPINASTINE HYDROCHLORIDE [Concomitant]
     Dosage: drug reported as HELVOTTZ
     Route: 048
     Dates: start: 20090701
  6. PRAVASTATIN NATRIUM [Concomitant]
     Route: 048
     Dates: start: 20090701

REACTIONS (1)
  - Subarachnoid haemorrhage [Recovered/Resolved]
